FAERS Safety Report 6473673-X (Version None)
Quarter: 2009Q4

REPORT INFORMATION
  Report Type: 
  Country: None (occurrence: None)
  Receive Date: 20091204
  Receipt Date: 20091202
  Transmission Date: 20100525
  Serious: Yes (Death)
  Sender: FDA-Public Use
  Company Number: GR-JNJFOC-20091201003

PATIENT
  Age: 70 Year
  Sex: Female

DRUGS (2)
  1. LEUSTATIN [Suspect]
     Indication: SYSTEMIC MASTOCYTOSIS
     Route: 065
  2. INTERFERON [Suspect]
     Indication: SYSTEMIC MASTOCYTOSIS
     Route: 065

REACTIONS (4)
  - ACINETOBACTER INFECTION [None]
  - DIARRHOEA [None]
  - DRUG INEFFECTIVE FOR UNAPPROVED INDICATION [None]
  - OFF LABEL USE [None]
